FAERS Safety Report 10644992 (Version 1)
Quarter: 2014Q4

REPORT INFORMATION
  Report Type: Spontaneous
  Country: US (occurrence: None)
  Receive Date: 20141210
  Receipt Date: 20141210
  Transmission Date: 20150529
  Serious: Yes (Disabling)
  Sender: FDA-Public Use
  Company Number: None

PATIENT
  Age: 50 Year
  Sex: Female
  Weight: 65.77 kg

DRUGS (1)
  1. LEVAQUIN [Suspect]
     Active Substance: LEVOFLOXACIN
     Indication: SINUSITIS
     Dosage: 1 PILL, ONCE DAILY, TAKEN BY MOUTH
     Route: 048
     Dates: start: 20140822, end: 20140831

REACTIONS (5)
  - Gait disturbance [None]
  - Hypoaesthesia [None]
  - Muscle contractions involuntary [None]
  - Tendon pain [None]
  - Activities of daily living impaired [None]

NARRATIVE: CASE EVENT DATE: 20140831
